FAERS Safety Report 5489316-8 (Version None)
Quarter: 2007Q4

REPORT INFORMATION
  Report Type: 
  Country: None (occurrence: None)
  Receive Date: 20071018
  Receipt Date: 20071015
  Transmission Date: 20080405
  Serious: Yes (Other)
  Sender: FDA-Public Use
  Company Number: DE-BRISTOL-MYERS SQUIBB COMPANY-13942933

PATIENT
  Age: 52 Year
  Sex: Female
  Weight: 68 kg

DRUGS (1)
  1. ORENCIA FOR INJ [Suspect]
     Indication: RHEUMATOID ARTHRITIS
     Dosage: 2 DOSAGE FORM= 2 AMPOULES OVER A PERIOD OF 20 MINUTES
     Dates: start: 20070917, end: 20070917

REACTIONS (6)
  - ANOREXIA [None]
  - DRY MOUTH [None]
  - EYE IRRITATION [None]
  - HEADACHE [None]
  - ORAL DISCOMFORT [None]
  - ORAL FUNGAL INFECTION [None]
